FAERS Safety Report 7113618-2 (Version None)
Quarter: 2010Q4

REPORT INFORMATION
  Report Type: 
  Country: None (occurrence: None)
  Receive Date: 20101119
  Receipt Date: 20101109
  Transmission Date: 20110411
  Serious: Yes (Death)
  Sender: FDA-Public Use
  Company Number: CA-ROCHE-740482

PATIENT
  Sex: Male
  Weight: 79.4 kg

DRUGS (1)
  1. BEVACIZUMAB [Suspect]
     Dosage: INFUSION
     Route: 042
     Dates: start: 20090604, end: 20100921

REACTIONS (1)
  - DEATH [None]
